FAERS Safety Report 5297592-X (Version None)
Quarter: 2007Q2

REPORT INFORMATION
  Report Type: 
  Country: None (occurrence: None)
  Receive Date: 20070416
  Receipt Date: 20070405
  Transmission Date: 20071010
  Serious: Yes (Other)
  Sender: FDA-Public Use
  Company Number: US-AVENTIS-200712518US

PATIENT
  Age: 26 Year
  Sex: Female

DRUGS (2)
  1. CLOMID [Suspect]
     Dosage: DOSE: UNK
     Dates: start: 20061101
  2. METHYLDOPA [Concomitant]
     Dosage: DOSE: UNK

REACTIONS (2)
  - BENIGN INTRACRANIAL HYPERTENSION [None]
  - INTRACRANIAL PRESSURE INCREASED [None]
